FAERS Safety Report 5334349-5 (Version None)
Quarter: 2007Q2

REPORT INFORMATION
  Report Type: 
  Country: None (occurrence: None)
  Receive Date: 20070525
  Receipt Date: 20061220
  Transmission Date: 20071010
  Serious: Yes (Other)
  Sender: FDA-Public Use
  Company Number: US-BRISTOL-MYERS SQUIBB COMPANY-13634613

PATIENT

DRUGS (1)
  1. CYCLOPHOSPHAMIDE [Suspect]

REACTIONS (1)
  - FEBRILE NEUTROPENIA [None]
